FAERS Safety Report 5637143-0 (Version None)
Quarter: 2008Q1

REPORT INFORMATION
  Report Type: 
  Country: None (occurrence: None)
  Receive Date: 20080225
  Receipt Date: 20071129
  Transmission Date: 20080703
  Serious: No
  Sender: FDA-Public Use
  Company Number: US-BRISTOL-MYERS SQUIBB COMPANY-13998620

PATIENT
  Age: 49 Year
  Sex: Female
  Weight: 98 kg

DRUGS (3)
  1. GLUCOPHAGE [Suspect]
     Indication: DIABETES MELLITUS
     Route: 048
     Dates: start: 20070301, end: 20071126
  2. TENORMIN [Concomitant]
  3. LASIX [Concomitant]

REACTIONS (1)
  - ALOPECIA [None]
